FAERS Safety Report 17539004 (Version 2)
Quarter: 2020Q2

REPORT INFORMATION
  Report Type: Spontaneous
  Country: US (occurrence: US)
  Receive Date: 20200313
  Receipt Date: 20200414
  Transmission Date: 20200713
  Serious: No
  Sender: FDA-Public Use
  Company Number: US-JNJFOC-20200309806

PATIENT
  Sex: Female

DRUGS (1)
  1. DURAGESIC [Suspect]
     Active Substance: FENTANYL
     Indication: NEURALGIA
     Route: 062

REACTIONS (5)
  - Feeling abnormal [Recovered/Resolved]
  - Sneezing [Recovered/Resolved]
  - Withdrawal syndrome [Recovered/Resolved]
  - Chills [Recovered/Resolved]
  - Product packaging issue [Unknown]
